FAERS Safety Report 5774280-4 (Version None)
Quarter: 2008Q2

REPORT INFORMATION
  Report Type: 
  Country: None (occurrence: None)
  Receive Date: 20080616
  Receipt Date: 20080605
  Transmission Date: 20081010
  Serious: Yes (Death)
  Sender: FDA-Public Use
  Company Number: US-JNJFOC-20080300682

PATIENT
  Sex: Female
  Weight: 66.23 kg

DRUGS (13)
  1. REMICADE [Suspect]
     Dosage: 3RD INFUSION
     Route: 042
  2. REMICADE [Suspect]
     Indication: RHEUMATOID ARTHRITIS
     Route: 042
  3. PYRAZINAMIDE [Suspect]
     Indication: TUBERCULOSIS
  4. SULFISOXAZOLE ACETYL [Concomitant]
     Route: 048
  5. METHOTREXATE [Concomitant]
     Route: 048
  6. PREDNISONE TAB [Concomitant]
  7. ISONIAZID [Concomitant]
  8. RIFAMPIN [Concomitant]
  9. ETHAMBUTOL HYDROCHLORIDE [Concomitant]
  10. PYRIDOXINE [Concomitant]
  11. AMIODARONE HCL [Concomitant]
  12. VICODIN [Concomitant]
  13. ACIPHEX [Concomitant]
     Indication: DYSPEPSIA

REACTIONS (4)
  - BLOOD ELECTROLYTES ABNORMAL [None]
  - DEATH [None]
  - LIVER DISORDER [None]
  - TUBERCULOSIS [None]
